FAERS Safety Report 25292486 (Version 2)
Quarter: 2025Q4

REPORT INFORMATION
  Report Type: Spontaneous
  Country: US (occurrence: US)
  Receive Date: 20250510
  Receipt Date: 20251106
  Transmission Date: 20260117
  Serious: No
  Sender: SANOFI AVENTIS
  Company Number: US-SA-2025SA124869

PATIENT
  Sex: Male

DRUGS (14)
  1. DUPIXENT [Suspect]
     Active Substance: DUPILUMAB
     Indication: Asthma
     Dosage: 300 MG, QOW
     Route: 058
  2. DUPIXENT [Suspect]
     Active Substance: DUPILUMAB
     Indication: Emphysema
  3. ALBUTEROL SULFATE [Concomitant]
     Active Substance: ALBUTEROL SULFATE
  4. CARVEDILOL [Concomitant]
     Active Substance: CARVEDILOL
  5. DIGOXIN [Concomitant]
     Active Substance: DIGOXIN
  6. PHENAZOPYRIDINE [Concomitant]
     Active Substance: PHENAZOPYRIDINE
  7. REPATHA [Concomitant]
     Active Substance: EVOLOCUMAB
  8. SPIRONOLACTONE [Concomitant]
     Active Substance: SPIRONOLACTONE
  9. TAMSULOSIN [Concomitant]
     Active Substance: TAMSULOSIN
  10. TORSEMIDE [Concomitant]
     Active Substance: TORSEMIDE
  11. TRELEGY ELLIPTA [Concomitant]
     Active Substance: FLUTICASONE FUROATE\UMECLIDINIUM BROMIDE\VILANTEROL TRIFENATATE
  12. WARFARIN SODIUM [Concomitant]
     Active Substance: WARFARIN SODIUM
  13. Carvedilol + clortalidona [Concomitant]
  14. DIGOXIN [Concomitant]
     Active Substance: DIGOXIN

REACTIONS (3)
  - Cough [Unknown]
  - Peripheral swelling [Unknown]
  - Nasopharyngitis [Not Recovered/Not Resolved]
